FAERS Safety Report 8186131-1 (Version None)
Quarter: 2012Q1

REPORT INFORMATION
  Report Type: 
  Country: None (occurrence: None)
  Receive Date: 20120301
  Receipt Date: 20120215
  Transmission Date: 20120608
  Serious: Yes (Death, Other)
  Sender: FDA-Public Use
  Company Number: 2012-00255

PATIENT
  Age: 22 Year
  Sex: Male

DRUGS (5)
  1. SERTRALINE HYDROCHLORIDE [Suspect]
     Indication: PRODUCT USED FOR UNKNOWN INDICATION
  2. CODEINE (UNKNOWN) [Concomitant]
  3. DIAZEPAM [Concomitant]
     Indication: PRODUCT USED FOR UNKNOWN INDICATION
  4. THEOPHYLLINE [Concomitant]
  5. ACETAMINOPHEN [Concomitant]

REACTIONS (2)
  - DRUG INTERACTION [None]
  - CARDIO-RESPIRATORY ARREST [None]
